FAERS Safety Report 8458935-9 (Version None)
Quarter: 2012Q2

REPORT INFORMATION
  Report Type: 
  Country: None (occurrence: None)
  Receive Date: 20120622
  Receipt Date: 20120618
  Transmission Date: 20120825
  Serious: Yes (Hospitalization)
  Sender: FDA-Public Use
  Company Number: IT-BAYER-2012-060214

PATIENT
  Age: 74 Year
  Sex: Female
  Weight: 70 kg

DRUGS (8)
  1. SORAFENIB (RAF KINASE INHIBITOR) [Suspect]
     Indication: METASTATIC RENAL CELL CARCINOMA
     Dosage: 800 MG DAILY
     Route: 048
     Dates: start: 20100719, end: 20100722
  2. RAMIPRIL [Concomitant]
     Dosage: 2.5 MG DAILY
     Route: 048
  3. MODURETIC 5-50 [Concomitant]
     Dosage: 55 MG TWO A WEEK
     Route: 048
  4. PORTOLAC [Concomitant]
     Dosage: 10 G DAILY
     Route: 048
  5. PAROMOMYCIN SULFATE [Concomitant]
     Dosage: 1000 MG AT MONTH
     Route: 048
  6. ALLOPURINOL [Concomitant]
     Dosage: 100 MG DAILY
     Route: 048
  7. METOPROLOL [Concomitant]
     Dosage: 100 MG DAILY
     Route: 048
     Dates: start: 20070221
  8. PAROXETINE HCL [Concomitant]
     Dosage: 10 MG DAILY
     Route: 048

REACTIONS (5)
  - NEOPLASM PROGRESSION [None]
  - METASTATIC RENAL CELL CARCINOMA [None]
  - CHOLECYSTITIS [None]
  - PULMONARY EMBOLISM [None]
  - PYREXIA [None]
